FAERS Safety Report 21326058 (Version 2)
Quarter: 2022Q3

REPORT INFORMATION
  Report Type: Spontaneous
  Country: US (occurrence: US)
  Receive Date: 20220913
  Receipt Date: 20220913
  Transmission Date: 20221027
  Serious: Yes (Other)
  Sender: FDA-Public Use
  Company Number: US-JNJFOC-20210838217

PATIENT
  Age: 52 Year
  Sex: Male
  Weight: 83.990 kg

DRUGS (5)
  1. STELARA [Suspect]
     Active Substance: USTEKINUMAB
     Indication: Product used for unknown indication
     Route: 058
  2. HUMIRA [Suspect]
     Active Substance: ADALIMUMAB
     Indication: Psoriasis
     Route: 058
     Dates: start: 2006, end: 201809
  3. HUMIRA [Suspect]
     Active Substance: ADALIMUMAB
     Indication: Psoriatic arthropathy
  4. CIMZIA [Suspect]
     Active Substance: CERTOLIZUMAB PEGOL
     Indication: Product used for unknown indication
     Route: 065
  5. COVID-19 vaccine [Concomitant]
     Indication: COVID-19 prophylaxis
     Route: 030
     Dates: start: 20210415, end: 20210507

REACTIONS (4)
  - Lupus-like syndrome [Unknown]
  - Liver function test increased [Recovered/Resolved]
  - Treatment failure [Unknown]
  - Liver scan abnormal [Recovering/Resolving]

NARRATIVE: CASE EVENT DATE: 20180503
